FAERS Safety Report 8482367-0 (Version None)
Quarter: 2012Q3

REPORT INFORMATION
  Report Type: 
  Country: None (occurrence: None)
  Receive Date: 20120702
  Receipt Date: 20120622
  Transmission Date: 20120928
  Serious: Yes (Life-Threatening, Hospitalization)
  Sender: FDA-Public Use
  Company Number: US-JNJFOC-20120405143

PATIENT
  Sex: Female
  Weight: 55.34 kg

DRUGS (6)
  1. METHOTREXATE [Suspect]
     Indication: SARCOIDOSIS
     Dates: end: 20120406
  2. SIMVASTATIN [Concomitant]
     Indication: HYPERLIPIDAEMIA
  3. FOLIC ACID [Concomitant]
  4. XARELTO [Suspect]
     Indication: ATRIAL FIBRILLATION
     Route: 048
     Dates: end: 20120405
  5. XARELTO [Suspect]
     Route: 048
     Dates: start: 20120309
  6. MULTIVITAMIN [Concomitant]

REACTIONS (2)
  - PANCYTOPENIA [None]
  - ARRHYTHMIA SUPRAVENTRICULAR [None]
